FAERS Safety Report 17006257 (Version 1)
Quarter: 2019Q4

REPORT INFORMATION
  Report Type: Spontaneous
  Country: GB (occurrence: GB)
  Receive Date: 20191107
  Receipt Date: 20191107
  Transmission Date: 20200122
  Serious: Yes (Life-Threatening)
  Sender: FDA-Public Use
  Company Number: GB-FRESENIUS KABI-FK201912283

PATIENT
  Age: 31 Year
  Sex: Female

DRUGS (1)
  1. GLYCOPYRROLATE INJECTION (MANUFACTURER UNKNOWN) [Suspect]
     Active Substance: GLYCOPYRROLATE
     Indication: BRADYCARDIA
     Route: 042

REACTIONS (1)
  - Stress cardiomyopathy [Recovering/Resolving]
